FAERS Safety Report 5042485-6 (Version None)
Quarter: 2006Q2

REPORT INFORMATION
  Report Type: 
  Country: None (occurrence: None)
  Receive Date: 20060627
  Receipt Date: 20060609
  Transmission Date: 20061013
  Serious: Yes (Other)
  Sender: FDA-Public Use
  Company Number: CH200606003025

PATIENT
  Age: 35 Year
  Sex: Female

DRUGS (2)
  1. ZYPREXA [Suspect]
     Indication: BIPOLAR I DISORDER
     Dosage: 10 MG, DAILY (1/D), ORAL
     Route: 048
     Dates: start: 20060507, end: 20060531
  2. LORAZEPAM [Concomitant]

REACTIONS (4)
  - ANAPHYLACTIC REACTION [None]
  - CONDITION AGGRAVATED [None]
  - DERMATITIS ALLERGIC [None]
  - MANIA [None]
